FAERS Safety Report 9154310 (Version 2)
Quarter: 2013Q4

REPORT INFORMATION
  Report Type: Spontaneous
  Country: FR (occurrence: FR)
  Receive Date: 20130311
  Receipt Date: 20131205
  Transmission Date: 20140711
  Serious: Yes (Hospitalization)
  Sender: FDA-Public Use
  Company Number: FR-PFIZER INC-2013075741

PATIENT
  Age: 41 Year
  Sex: Male

DRUGS (4)
  1. ADVIL [Suspect]
     Indication: INFECTION
     Dosage: 400 MG, 3X/DAY
     Route: 048
     Dates: start: 20130211, end: 20130215
  2. ZECLAR [Concomitant]
     Dosage: 500 MG, 2X/DAY
  3. MUCOMYST [Concomitant]
     Dosage: UNK
     Dates: start: 20130211
  4. TEGRETOL [Concomitant]
     Indication: EPILEPSY
     Dosage: 1 DOSAGE FORM (DF) IN THE MORNING AND 2 DFS IN THE EVENING DAILY

REACTIONS (2)
  - Pneumonia [Recovered/Resolved]
  - Infection [Recovered/Resolved]
